FAERS Safety Report 6467131-6 (Version None)
Quarter: 2009Q4

REPORT INFORMATION
  Report Type: 
  Country: None (occurrence: None)
  Receive Date: 20091202
  Receipt Date: 20091125
  Transmission Date: 20100525
  Serious: Yes (Other)
  Sender: FDA-Public Use
  Company Number: US-BRISTOL-MYERS SQUIBB COMPANY-14862551

PATIENT
  Age: 30 Year
  Sex: Female

DRUGS (10)
  1. ORENCIA [Suspect]
     Indication: RHEUMATOID ARTHRITIS
     Dosage: RECEIVED 750 MG, Q2,4+Q4W 10APR08-06NOV08, 1000 MG, Q4W, 04DEC08, RECEIVED 750 MG, Q4W, 13JUL09.
     Route: 042
     Dates: start: 20080410
  2. AMITRIPTYLINE HCL [Concomitant]
     Dosage: 1 TABLET EVERY DAY AT BEDTIME.
     Route: 048
  3. ASPIRIN [Concomitant]
     Dosage: 2 TABLET (650 MG) BY ORAL ROUTE EVERY 6 HOURS.
     Route: 048
  4. FOLIC ACID [Concomitant]
     Route: 048
  5. IMITREX [Concomitant]
  6. METHOTREXATE [Concomitant]
     Dosage: 1 DOSAGE FORM = 25 MG/ML, INJECT 0.6 ML.
     Route: 058
  7. MULTI-VITAMIN [Concomitant]
  8. PRILOSEC [Concomitant]
     Dosage: 1 CAPSULE.
     Route: 048
  9. REBIF [Concomitant]
     Dosage: REBIF 44 MCG/0.5 ML, INJECT 3 TIMES Q WEEK.
  10. TIZANIDINE HCL [Concomitant]
     Dosage: 4 TABLET, HS, PRN.
     Route: 048

REACTIONS (1)
  - MULTIPLE SCLEROSIS [None]
